FAERS Safety Report 9912711 (Version 1)
Quarter: 2014Q1

REPORT INFORMATION
  Report Type: Spontaneous
  Country: US (occurrence: None)
  Receive Date: 20140212
  Receipt Date: 20140212
  Transmission Date: 20141002
  Serious: Yes (Other)
  Sender: FDA-Public Use
  Company Number: 2014040551

PATIENT
  Sex: Female

DRUGS (1)
  1. STIMATE [Suspect]
     Route: 045

REACTIONS (2)
  - Haemorrhage [None]
  - Exposure during pregnancy [None]
